FAERS Safety Report 5671634-1 (Version None)
Quarter: 2008Q2

REPORT INFORMATION
  Report Type: 
  Country: None (occurrence: None)
  Receive Date: 20080227
  Receipt Date: 20070824
  Transmission Date: 20081010
  Serious: Yes (Hospitalization)
  Sender: FDA-Public Use
  Company Number: DSA_30501_2007

PATIENT
  Sex: Male
  Weight: 54.8852 kg

DRUGS (3)
  1. CARDIZEM CD [Suspect]
     Indication: DRUG USE FOR UNKNOWN INDICATION
     Dosage: ORAL
     Route: 048
  2. LISINOPRIL [Concomitant]
  3. CLONIDINE [Concomitant]

REACTIONS (1)
  - BRADYCARDIA [None]
